FAERS Safety Report 15957430 (Version 1)
Quarter: 2019Q1

REPORT INFORMATION
  Report Type: Report from Study
  Country: CO (occurrence: CO)
  Receive Date: 20190213
  Receipt Date: 20190213
  Transmission Date: 20190417
  Serious: Yes (Hospitalization)
  Sender: FDA-Public Use
  Company Number: CO-ASTELLAS-2019US004319

PATIENT
  Age: 62 Year
  Sex: Male
  Weight: 65 kg

DRUGS (1)
  1. TACROLIMUS. [Suspect]
     Active Substance: TACROLIMUS
     Indication: RENAL TRANSPLANT
     Route: 048
     Dates: start: 20180302

REACTIONS (2)
  - Pain [Not Recovered/Not Resolved]
  - Localised oedema [Not Recovered/Not Resolved]

NARRATIVE: CASE EVENT DATE: 20190109
